FAERS Safety Report 5491638-1 (Version None)
Quarter: 2007Q4

REPORT INFORMATION
  Report Type: 
  Country: None (occurrence: None)
  Receive Date: 20071018
  Receipt Date: 20071018
  Transmission Date: 20080405
  Serious: Yes (Hospitalization)
  Sender: FDA-Public Use
  Company Number: None

PATIENT
  Age: 48 Year
  Sex: Male
  Weight: 65 kg

DRUGS (1)
  1. LAMICTAL [Suspect]
     Indication: BIPOLAR DISORDER
     Dosage: 25 BID AND TID PO
     Route: 048
     Dates: start: 20070925, end: 20071004

REACTIONS (3)
  - DIARRHOEA [None]
  - HAEMATOMA [None]
  - RASH MACULO-PAPULAR [None]
